FAERS Safety Report 25219341 (Version 1)
Quarter: 2025Q2

REPORT INFORMATION
  Report Type: Spontaneous
  Country: PL (occurrence: PL)
  Receive Date: 20250421
  Receipt Date: 20250421
  Transmission Date: 20250716
  Serious: Yes (Other)
  Sender: MYLAN
  Company Number: PL-002147023-NVSC2025PL054167

PATIENT
  Age: 63 Year
  Sex: Male

DRUGS (1)
  1. IMATINIB [Suspect]
     Active Substance: IMATINIB
     Indication: Chronic myeloid leukaemia

REACTIONS (5)
  - Anaemia [Unknown]
  - Chronic myeloid leukaemia recurrent [Unknown]
  - Myalgia [Unknown]
  - Asthenia [Unknown]
  - Periorbital oedema [Unknown]
